FAERS Safety Report 6542799-4 (Version None)
Quarter: 2010Q1

REPORT INFORMATION
  Report Type: 
  Country: None (occurrence: None)
  Receive Date: 20100114
  Receipt Date: 20091228
  Transmission Date: 20100710
  Serious: Yes (Life-Threatening, Hospitalization)
  Sender: FDA-Public Use
  Company Number: DSA_42315_2010

PATIENT
  Sex: Female

DRUGS (9)
  1. DILTIAZEM HYDROCHLORIDE [Suspect]
     Indication: HYPERTENSION
     Dosage: 30 MG BID ORAL
     Route: 048
     Dates: end: 20091215
  2. LEVOFLOXACIN [Suspect]
     Indication: INFECTION
     Dosage: 100 MG BID ORAL
     Route: 048
     Dates: start: 20090601, end: 20091215
  3. GASTER /00706001/ (GASTER - FAMATIDINE) (NOT SPECIFIED) [Suspect]
     Indication: PROPHYLAXIS AGAINST GASTROINTESTINAL ULCER
     Dosage: 20 MG QD ORAL
     Route: 048
     Dates: end: 20091215
  4. FENOFIBRATE [Suspect]
     Indication: LIPID METABOLISM DISORDER
     Dosage: 54 MG QD ORAL
     Route: 048
     Dates: end: 20091215
  5. NORVASC [Concomitant]
  6. BLOPRESS [Concomitant]
  7. PANALDINE [Concomitant]
  8. PLETAL [Concomitant]
  9. METFORMIN HCL [Concomitant]

REACTIONS (9)
  - BLOOD CHOLESTEROL INCREASED [None]
  - BLOOD GLUCOSE INCREASED [None]
  - CHEST DISCOMFORT [None]
  - ELECTROCARDIOGRAM QT PROLONGED [None]
  - GASTROENTERITIS [None]
  - NAUSEA [None]
  - VENTRICULAR FIBRILLATION [None]
  - VENTRICULAR TACHYCARDIA [None]
  - VOMITING [None]
